FAERS Safety Report 8658347 (Version 8)
Quarter: 2017Q1

REPORT INFORMATION
  Report Type: Report from Study
  Country: CA (occurrence: CA)
  Receive Date: 20120710
  Receipt Date: 20170314
  Transmission Date: 20170429
  Serious: Yes (Other)
  Sender: FDA-Public Use
  Company Number: CA-ROCHE-1084555

PATIENT
  Age: 55 Year
  Sex: Female
  Weight: 56.75 kg

DRUGS (22)
  1. BISOPROLOL [Concomitant]
     Active Substance: BISOPROLOL
  2. CHAMPIX [Concomitant]
     Active Substance: VARENICLINE TARTRATE
  3. DIPHENHYDRAMINE HCL [Concomitant]
     Active Substance: DIPHENHYDRAMINE HYDROCHLORIDE
     Indication: PREMEDICATION
     Route: 048
     Dates: start: 20100622
  4. FAMCICLOVIR. [Concomitant]
     Active Substance: FAMCICLOVIR
     Dosage: AS REQUIRED
     Route: 065
  5. HYDROXYQUINOLINE [Concomitant]
  6. MAVIK [Concomitant]
     Active Substance: TRANDOLAPRIL
  7. PREDNISONE. [Concomitant]
     Active Substance: PREDNISONE
  8. NAPROSYN [Concomitant]
     Active Substance: NAPROXEN
  9. ORENCIA [Suspect]
     Active Substance: ABATACEPT
     Indication: RHEUMATOID ARTHRITIS
     Route: 042
  10. TOLOXIN (CANADA) [Concomitant]
  11. METHYLPREDNISOLONE. [Concomitant]
     Active Substance: METHYLPREDNISOLONE
     Indication: PREMEDICATION
     Route: 042
     Dates: start: 20100622
  12. SALBUTAMOL [Concomitant]
     Active Substance: ALBUTEROL
  13. ALTACE [Concomitant]
     Active Substance: RAMIPRIL
  14. SYMBICORT [Concomitant]
     Active Substance: BUDESONIDE\FORMOTEROL FUMARATE DIHYDRATE
  15. ALDACTONE [Concomitant]
     Active Substance: SPIRONOLACTONE
  16. CARVEDILOL. [Concomitant]
     Active Substance: CARVEDILOL
  17. CALCITE [Concomitant]
     Active Substance: CALCIUM CARBONATE
  18. ACETAMINOPHEN. [Concomitant]
     Active Substance: ACETAMINOPHEN
     Indication: PREMEDICATION
     Route: 048
     Dates: start: 20100622
  19. MONTELUKAST [Concomitant]
     Active Substance: MONTELUKAST SODIUM
  20. SPIRIVA [Concomitant]
     Active Substance: TIOTROPIUM BROMIDE MONOHYDRATE
  21. RITUXAN [Suspect]
     Active Substance: RITUXIMAB
     Indication: RHEUMATOID ARTHRITIS
     Dosage: RECENT RITUXIMAB DOSE ON 12/DEC/2016
     Route: 042
     Dates: start: 20100622
  22. CRESTOR [Concomitant]
     Active Substance: ROSUVASTATIN CALCIUM

REACTIONS (9)
  - Lymphoma [Unknown]
  - Erythema [Unknown]
  - Malignant melanoma [Unknown]
  - Lymphoma [Not Recovered/Not Resolved]
  - Infusion related reaction [Unknown]
  - Heart rate decreased [Unknown]
  - Urinary tract infection [Recovered/Resolved]
  - Body temperature decreased [Unknown]
  - Herpes zoster [Unknown]

NARRATIVE: CASE EVENT DATE: 20111208
